FAERS Safety Report 10632447 (Version 1)
Quarter: 2014Q4

REPORT INFORMATION
  Report Type: Spontaneous
  Country: US (occurrence: US)
  Receive Date: 20141205
  Receipt Date: 20141205
  Transmission Date: 20150529
  Serious: No
  Sender: FDA-Public Use
  Company Number: US-BRISTOL-MYERS SQUIBB COMPANY-21490859

PATIENT
  Age: 58 Year
  Sex: Female

DRUGS (17)
  1. SPRYCEL [Suspect]
     Active Substance: DASATINIB
     Dosage: 70MG
     Dates: start: 20131029
  2. OXYCODONE [Concomitant]
     Active Substance: OXYCODONE
  3. GABAPENTIN. [Concomitant]
     Active Substance: GABAPENTIN
  4. CEPHALEXIN. [Concomitant]
     Active Substance: CEPHALEXIN
  5. CYCLOBENZAPRINE [Concomitant]
     Active Substance: CYCLOBENZAPRINE
  6. CITALOPRAM [Concomitant]
     Active Substance: CITALOPRAM HYDROBROMIDE
  7. B COMPLEX 100 [Concomitant]
  8. LEVOTHYROXINE [Concomitant]
     Active Substance: LEVOTHYROXINE
  9. TRAMADOL [Concomitant]
     Active Substance: TRAMADOL
  10. MAGNESIUM [Concomitant]
     Active Substance: MAGNESIUM
  11. METOLAZONE. [Concomitant]
     Active Substance: METOLAZONE
  12. TRAZODONE HYDROCHLORIDE. [Concomitant]
     Active Substance: TRAZODONE HYDROCHLORIDE
  13. LYRICA [Concomitant]
     Active Substance: PREGABALIN
  14. PANTOPRAZOLE [Concomitant]
     Active Substance: PANTOPRAZOLE SODIUM
  15. ALPRAZOLAM. [Concomitant]
     Active Substance: ALPRAZOLAM
  16. MECLIZINE [Concomitant]
     Active Substance: MECLIZINE\MECLIZINE HYDROCHLORIDE
  17. HYOSCYAMINE [Concomitant]
     Active Substance: HYOSCYAMINE

REACTIONS (3)
  - Fatigue [Unknown]
  - Pain [Unknown]
  - Migraine [Unknown]
